FAERS Safety Report 7478816-7 (Version None)
Quarter: 2011Q2

REPORT INFORMATION
  Report Type: 
  Country: None (occurrence: None)
  Receive Date: 20110513
  Receipt Date: 20110504
  Transmission Date: 20111010
  Serious: Yes (Other)
  Sender: FDA-Public Use
  Company Number: RO-ROCHE-775425

PATIENT
  Sex: Male

DRUGS (4)
  1. PEG-INTERFERON LAMBDA [Suspect]
     Route: 065
     Dates: start: 20100728, end: 20110404
  2. INTERFERON ALFA [Suspect]
     Route: 065
     Dates: start: 20100728, end: 20110404
  3. RIBAVIRIN [Suspect]
     Route: 065
     Dates: start: 20100728, end: 20101006
  4. RIBAVIRIN [Suspect]
     Route: 065
     Dates: start: 20101006

REACTIONS (2)
  - HYPERBILIRUBINAEMIA [None]
  - HEPATIC ENZYME INCREASED [None]
